FAERS Safety Report 21963750 (Version 4)
Quarter: 2023Q1

REPORT INFORMATION
  Report Type: Spontaneous
  Country: US (occurrence: US)
  Receive Date: 20230207
  Receipt Date: 20230228
  Transmission Date: 20230417
  Serious: No
  Sender: FDA-Public Use
  Company Number: US-SA-SAC20230206001400

PATIENT
  Age: 55 Year
  Sex: Female

DRUGS (1)
  1. KEVZARA [Suspect]
     Active Substance: SARILUMAB
     Indication: Rheumatoid arthritis
     Dosage: 200 MG, QOW
     Route: 058
     Dates: end: 20230130

REACTIONS (7)
  - Injection site swelling [Unknown]
  - Red blood cell count decreased [Not Recovered/Not Resolved]
  - Hypercholesterolaemia [Unknown]
  - White blood cell count decreased [Unknown]
  - Injection site pruritus [Unknown]
  - Drug ineffective [Unknown]
  - Aspartate aminotransferase increased [Not Recovered/Not Resolved]
